FAERS Safety Report 4321288-1 (Version None)
Quarter: 2004Q1

REPORT INFORMATION
  Report Type: 
  Country: None (occurrence: None)
  Receive Date: 20040322
  Receipt Date: 20030224
  Transmission Date: 20041129
  Serious: No
  Sender: FDA-Public Use
  Company Number: US-BRISTOL-MYERS SQUIBB COMPANY-12203469

PATIENT
  Age: 26 Year
  Sex: Female
  Weight: 111 kg

DRUGS (2)
  1. VAGISTAT-1 [Suspect]
     Indication: GENITAL PRURITUS FEMALE
     Route: 067
     Dates: start: 20030216, end: 20030216
  2. VAGISTAT-1 [Suspect]
     Indication: VAGINAL BURNING SENSATION
     Route: 067
     Dates: start: 20030216, end: 20030216

REACTIONS (2)
  - DRUG INEFFECTIVE [None]
  - VAGINAL ERYTHEMA [None]
